FAERS Safety Report 8132005-1 (Version None)
Quarter: 2012Q1

REPORT INFORMATION
  Report Type: 
  Country: None (occurrence: None)
  Receive Date: 20120213
  Receipt Date: 20120131
  Transmission Date: 20120608
  Serious: Yes (Hospitalization)
  Sender: FDA-Public Use
  Company Number: DE-UCBSA-050691

PATIENT
  Sex: Male

DRUGS (3)
  1. LEF [Concomitant]
     Dosage: 20 (UNSPECIFIED)
  2. METHOTREXATE [Concomitant]
     Dosage: 15, 0 (UNSPECIFIED)
  3. CIMZIA [Suspect]
     Indication: RHEUMATOID ARTHRITIS
     Dosage: 400 MG
     Route: 058
     Dates: start: 20110701, end: 20110801

REACTIONS (1)
  - DEEP VEIN THROMBOSIS [None]
